FAERS Safety Report 5034471-7 (Version None)
Quarter: 2006Q2

REPORT INFORMATION
  Report Type: 
  Country: None (occurrence: None)
  Receive Date: 20060621
  Receipt Date: 20060612
  Transmission Date: 20061013
  Serious: Yes (Hospitalization, Other)
  Sender: FDA-Public Use
  Company Number: 2006-06-0979

PATIENT
  Age: 47 Year
  Sex: Male
  Weight: 52 kg

DRUGS (3)
  1. TEMODAR [Suspect]
     Indication: GLIOMA
     Dosage: 250 MG ORAL
     Route: 048
     Dates: start: 20060501, end: 20060505
  2. VALPROATE SODIUM [Concomitant]
  3. RADIATION THERAPY [Concomitant]

REACTIONS (4)
  - NEUTROPENIA [None]
  - PURPURA [None]
  - PYREXIA [None]
  - THROMBOCYTOPENIA [None]
